FAERS Safety Report 4630454-7 (Version None)
Quarter: 2005Q2

REPORT INFORMATION
  Report Type: 
  Country: None (occurrence: None)
  Receive Date: 20050405
  Receipt Date: 20050405
  Transmission Date: 20051028
  Serious: No
  Sender: FDA-Public Use
  Company Number: None

PATIENT
  Sex: Female
  Weight: 83.6 kg

DRUGS (7)
  1. DOXORUBICIN HCL [Suspect]
     Dosage: 25 MG/M2 IV WK 1, 3, 5, 7, 9, 11
     Route: 042
     Dates: start: 20050118
  2. VINBLASTINE SULFATE [Suspect]
     Dosage: 6 MG/M2 IV WK 1, 3, 5, 7, 9, 11
     Route: 042
  3. VINCRISTINE [Suspect]
     Dosage: 1.4 MG/M2 IV WK 2, 4, 6, 8, 10, 12
     Route: 042
  4. BLEOMYCIN [Suspect]
     Dosage: 5 U/M2 IV WK 2, 4, 6, 8, 10, 12
     Route: 042
  5. MUSTARD [Suspect]
     Dosage: 6 MG/M2 IV WK 1, 5, 9
     Route: 042
  6. ETOPOSIDE [Suspect]
     Dosage: 60 MG/M2 IV X 2 WK 3, 7, 11
     Route: 042
  7. PREDNISONE [Suspect]
     Dosage: 40 MG/M2 PO WK 1-9, TAPER
     Route: 048

REACTIONS (2)
  - DEHYDRATION [None]
  - HYPOKALAEMIA [None]
